FAERS Safety Report 8289383-2 (Version None)
Quarter: 2012Q2

REPORT INFORMATION
  Report Type: 
  Country: None (occurrence: None)
  Receive Date: 20120417
  Receipt Date: 20120410
  Transmission Date: 20120825
  Serious: Yes (Hospitalization)
  Sender: FDA-Public Use
  Company Number: FR-UCBSA-055087

PATIENT
  Age: 56 Year
  Sex: Female

DRUGS (11)
  1. KETOPROFEN [Suspect]
     Dosage: DAILY DOSE : 100 MG
     Route: 048
     Dates: start: 20110724, end: 20110724
  2. CLONAZEPAM [Concomitant]
     Indication: STATUS EPILEPTICUS
     Dates: start: 20110701
  3. KETOPROFEN [Suspect]
     Dosage: DAILY DOSE : 200 MG
     Route: 048
     Dates: start: 20110722, end: 20110723
  4. ACETAMINOPHEN [Concomitant]
     Dosage: DAILY DOSE : 3 G
     Dates: start: 20110724, end: 20110724
  5. KETOPROFEN [Suspect]
     Dosage: DAILY DOSE : 100 MG
     Route: 048
     Dates: start: 20110720, end: 20110721
  6. KEPPRA [Suspect]
     Dosage: DAILY DOSE : 1.5 G
     Route: 048
     Dates: start: 20110720, end: 20110724
  7. ACETAMINOPHEN [Concomitant]
     Dosage: DAILY DOSE : 2 G
     Dates: start: 20110714
  8. DEPAKENE [Concomitant]
     Indication: STATUS EPILEPTICUS
  9. KEPPRA [Suspect]
     Route: 048
     Dates: start: 20110714, end: 20110719
  10. KETOPROFEN [Suspect]
     Indication: HEADACHE
     Dosage: DAILY DOSE : 200 MG
     Route: 048
     Dates: start: 20110725, end: 20110725
  11. KEPPRA [Suspect]
     Dosage: DAILY DOSE : 2 G, GRADUALLY REDUCED
     Route: 048
     Dates: start: 20110725, end: 20110808

REACTIONS (1)
  - MIXED LIVER INJURY [None]
